FAERS Safety Report 22215998 (Version 2)
Quarter: 2023Q2

REPORT INFORMATION
  Report Type: Spontaneous
  Country: AU (occurrence: AU)
  Receive Date: 20230417
  Receipt Date: 20230420
  Transmission Date: 20230721
  Serious: Yes (Life-Threatening, Hospitalization, Other)
  Sender: FDA-Public Use
  Company Number: AU-DENTSPLY-2023SCDP000114

PATIENT
  Sex: Female

DRUGS (1)
  1. LIDOCAINE [Suspect]
     Active Substance: LIDOCAINE
     Indication: Local anaesthesia
     Dosage: 15 MILLILITER OF 1% LIDOCAINE
     Route: 064

REACTIONS (12)
  - Infantile apnoea [Recovered/Resolved]
  - Toxicity to various agents [Recovered/Resolved]
  - Foetal exposure during delivery [Unknown]
  - Hypotonia neonatal [None]
  - Pupil fixed [Recovered/Resolved]
  - Electrocardiogram QT prolonged [Recovered/Resolved]
  - Neonatal respiratory acidosis [Recovered/Resolved]
  - Bradycardia neonatal [Recovered/Resolved]
  - Methaemoglobinaemia [Recovered/Resolved]
  - Drug level increased [Recovered/Resolved]
  - Neonatal seizure [Recovered/Resolved]
  - Local anaesthetic systemic toxicity [None]
